FAERS Safety Report 4582495-6 (Version None)
Quarter: 2005Q1

REPORT INFORMATION
  Report Type: 
  Country: None (occurrence: None)
  Receive Date: 20050211
  Receipt Date: 20050211
  Transmission Date: 20050727
  Serious: No
  Sender: FDA-Public Use
  Company Number: None

PATIENT
  Sex: Male
  Weight: 93.8946 kg

DRUGS (4)
  1. LIPITOR [Suspect]
     Indication: BLOOD CHOLESTEROL INCREASED
     Dosage: 20 MG DAY ORAL
     Route: 048
     Dates: start: 20040715, end: 20050120
  2. PREVACID [Concomitant]
  3. GEODON [Concomitant]
  4. AMLODIPINE [Concomitant]

REACTIONS (3)
  - ARTERIOSPASM CORONARY [None]
  - LIVER FUNCTION TEST ABNORMAL [None]
  - PAIN IN EXTREMITY [None]
